FAERS Safety Report 5841229-5 (Version None)
Quarter: 2008Q3

REPORT INFORMATION
  Report Type: 
  Country: None (occurrence: None)
  Receive Date: 20080812
  Receipt Date: 20080802
  Transmission Date: 20090109
  Serious: Yes (Death, Other)
  Sender: FDA-Public Use
  Company Number: US-BAYER-200823830GPV

PATIENT
  Sex: Female

DRUGS (1)
  1. FLUDARABINE [Suspect]
     Indication: BONE MARROW CONDITIONING REGIMEN
     Route: 065

REACTIONS (8)
  - BLINDNESS [None]
  - DEATH [None]
  - HALLUCINATION [None]
  - MYODESOPSIA [None]
  - OCULAR TOXICITY [None]
  - OPTIC ATROPHY [None]
  - VISUAL ACUITY REDUCED [None]
  - VISUAL IMPAIRMENT [None]
